FAERS Safety Report 13135219 (Version 2)
Quarter: 2017Q2

REPORT INFORMATION
  Report Type: Report from Study
  Country: BR (occurrence: BR)
  Receive Date: 20170120
  Receipt Date: 20170505
  Transmission Date: 20170830
  Serious: Yes (Hospitalization)
  Sender: FDA-Public Use
  Company Number: BR-BIOGEN-2017BI00344816

PATIENT
  Age: 27 Year
  Sex: Male

DRUGS (1)
  1. TECFIDERA [Suspect]
     Active Substance: DIMETHYL FUMARATE
     Indication: MULTIPLE SCLEROSIS
     Route: 048
     Dates: start: 20160711, end: 20161120

REACTIONS (8)
  - Sensory loss [Unknown]
  - Multiple sclerosis relapse [Unknown]
  - Musculoskeletal disorder [Unknown]
  - Malaise [Unknown]
  - Spondylitis [Unknown]
  - Drug ineffective [Unknown]
  - Multiple sclerosis [Unknown]
  - Abasia [Unknown]

NARRATIVE: CASE EVENT DATE: 201609
